FAERS Safety Report 12805813 (Version 1)
Quarter: 2016Q4

REPORT INFORMATION
  Report Type: Spontaneous
  Country: US (occurrence: US)
  Receive Date: 20161004
  Receipt Date: 20161004
  Transmission Date: 20170207
  Serious: Yes (Other)
  Sender: FDA-Public Use
  Company Number: US-IROKO PHARMACEUTICALS LLC-US-I09001-16-00072

PATIENT
  Age: 65 Year
  Sex: Female
  Weight: 52.21 kg

DRUGS (1)
  1. INDOCIN [Suspect]
     Active Substance: INDOMETHACIN
     Indication: MIGRAINE
     Route: 065

REACTIONS (3)
  - Hip fracture [Unknown]
  - Off label use [Unknown]
  - Underweight [Unknown]
